FAERS Safety Report 9406016 (Version 1)
Quarter: 2013Q3

REPORT INFORMATION
  Report Type: Spontaneous
  Country: DE (occurrence: DE)
  Receive Date: 20130717
  Receipt Date: 20130717
  Transmission Date: 20140515
  Serious: Yes (Other)
  Sender: FDA-Public Use
  Company Number: DE-ASTRAZENECA-2013SE51228

PATIENT
  Sex: Male

DRUGS (1)
  1. BRILIQUE [Suspect]
     Route: 048

REACTIONS (1)
  - Hepatic neoplasm [Unknown]
